FAERS Safety Report 10218832 (Version 1)
Quarter: 2014Q2

REPORT INFORMATION
  Report Type: Spontaneous
  Country: US (occurrence: US)
  Receive Date: 20140605
  Receipt Date: 20140605
  Transmission Date: 20141212
  Serious: No
  Sender: FDA-Public Use
  Company Number: US-009507513-1405USA015608

PATIENT
  Sex: Female

DRUGS (1)
  1. COPPERTONE CLEARLY SHEER FOR BEACH AND POOL SPRAY SPF 30 [Suspect]
     Indication: PRODUCT USED FOR UNKNOWN INDICATION
     Dosage: MULTIPLE APPLICATIONS
     Route: 061
     Dates: start: 20140526

REACTIONS (2)
  - Sunburn [Unknown]
  - Therapeutic product ineffective [Unknown]
